FAERS Safety Report 6308925-7 (Version None)
Quarter: 2009Q3

REPORT INFORMATION
  Report Type: 
  Country: None (occurrence: None)
  Receive Date: 20090813
  Receipt Date: 20090528
  Transmission Date: 20100115
  Serious: No
  Sender: FDA-Public Use
  Company Number: US-ALLERGAN-0907548US

PATIENT
  Age: 79 Year
  Sex: Female
  Weight: 65.76 kg

DRUGS (8)
  1. COMBIGAN [Suspect]
     Indication: GLAUCOMA
     Dosage: UNK, BID
     Route: 047
     Dates: end: 20090501
  2. TRAVATAN [Suspect]
     Indication: GLAUCOMA
     Dosage: UNK, QD
     Route: 047
     Dates: end: 20090501
  3. SYSTANE [Suspect]
     Indication: DRY EYE
     Dosage: UNK, PRN
     Route: 047
     Dates: end: 20090501
  4. ACTONEL [Concomitant]
     Indication: OSTEOPOROSIS
     Dosage: 35 MG, Q WEEK FOR SEVERAL YEARS
  5. PREVACID [Concomitant]
     Indication: GASTROINTESTINAL ULCER
     Dosage: 30 MG, QOD FOR SEVERAL YEARS
  6. PREVACID [Concomitant]
     Indication: HIATUS HERNIA
  7. ATENOLOL [Concomitant]
     Indication: HYPERTENSION
     Dosage: 25 MG, QD FOR SEVERAL YEARS
  8. SIMVASTATIN [Concomitant]
     Indication: BLOOD CHOLESTEROL INCREASED
     Dosage: 40 MG, QD FOR SEVERAL YEARS

REACTIONS (4)
  - EYE IRRITATION [None]
  - EYE PRURITUS [None]
  - HYPERSENSITIVITY [None]
  - OCULAR HYPERAEMIA [None]
